FAERS Safety Report 9796352 (Version 2)
Quarter: 2014Q1

REPORT INFORMATION
  Report Type: Report from Study
  Country: US (occurrence: US)
  Receive Date: 20140103
  Receipt Date: 20140110
  Transmission Date: 20141002
  Serious: No
  Sender: FDA-Public Use
  Company Number: US-BAXTER-2013BAX051377

PATIENT
  Age: 54 Year
  Sex: Female

DRUGS (2)
  1. GAMMAGARD LIQUID [Suspect]
     Indication: SELECTIVE IGG SUBCLASS DEFICIENCY
     Route: 042
     Dates: start: 20131125
  2. GAMMAGARD LIQUID [Suspect]
     Indication: SELECTIVE IGM IMMUNODEFICIENCY

REACTIONS (2)
  - Headache [Recovered/Resolved]
  - Migraine [Unknown]
